FAERS Safety Report 6275378-7 (Version None)
Quarter: 2009Q3

REPORT INFORMATION
  Report Type: 
  Country: None (occurrence: None)
  Receive Date: 20090721
  Receipt Date: 20090714
  Transmission Date: 20100115
  Serious: Yes (Hospitalization)
  Sender: FDA-Public Use
  Company Number: DE-AMGEN-UK354089

PATIENT
  Sex: Female
  Weight: 54 kg

DRUGS (3)
  1. NPLATE [Suspect]
     Indication: IDIOPATHIC THROMBOCYTOPENIC PURPURA
     Route: 058
     Dates: start: 20090219
  2. IMMUNE GLOBULIN INTRAVENOUS (HUMAN) [Concomitant]
     Route: 065
     Dates: start: 20090312, end: 20090312
  3. DEXAMETHASONE [Concomitant]
     Dates: start: 20090312, end: 20090312

REACTIONS (4)
  - MALAISE [None]
  - PNEUMONIA [None]
  - PYREXIA [None]
  - VENOUS THROMBOSIS LIMB [None]
